FAERS Safety Report 4394299-8 (Version None)
Quarter: 2004Q3

REPORT INFORMATION
  Report Type: 
  Country: None (occurrence: None)
  Receive Date: 20040707
  Receipt Date: 20040707
  Transmission Date: 20050211
  Serious: Yes (Life-Threatening, Hospitalization)
  Sender: FDA-Public Use
  Company Number: None

PATIENT
  Age: 34 Year
  Sex: Female
  Weight: 68.0396 kg

DRUGS (1)
  1. AVELOX [Suspect]
     Indication: SINUSITIS
     Dosage: TOOK ONLY 1

REACTIONS (9)
  - DYSPNOEA [None]
  - FATIGUE [None]
  - LOSS OF CONSCIOUSNESS [None]
  - NEPHROLITHIASIS [None]
  - PRURITUS [None]
  - RESPIRATORY ARREST [None]
  - SWELLING [None]
  - URTICARIA [None]
  - VOMITING [None]
